FAERS Safety Report 12316748 (Version 1)
Quarter: 2016Q2

REPORT INFORMATION
  Report Type: Spontaneous
  Country: US (occurrence: US)
  Receive Date: 20160429
  Receipt Date: 20160429
  Transmission Date: 20160815
  Serious: Yes (Hospitalization)
  Sender: FDA-Public Use
  Company Number: US-BEH-2016061782

PATIENT
  Sex: Male
  Weight: 15 kg

DRUGS (10)
  1. DIPHENHYDRAMINE. [Concomitant]
     Active Substance: DIPHENHYDRAMINE
  2. POTASSIUM [Concomitant]
     Active Substance: POTASSIUM
  3. SODIUM BICARBONATE. [Concomitant]
     Active Substance: SODIUM BICARBONATE
  4. ALBUTEROL. [Concomitant]
     Active Substance: ALBUTEROL
  5. MAGNESIUM [Concomitant]
     Active Substance: MAGNESIUM
  6. SIROLIMUS. [Concomitant]
     Active Substance: SIROLIMUS
  7. PREDNISONE. [Concomitant]
     Active Substance: PREDNISONE
  8. HYDROCORTISONE. [Concomitant]
     Active Substance: HYDROCORTISONE
  9. HIZENTRA [Suspect]
     Active Substance: HUMAN IMMUNOGLOBULIN G
     Indication: DIGEORGE^S SYNDROME
     Dosage: FREQUENCY: AS DIRECTED
     Route: 058
     Dates: start: 20130206
  10. EPIPEN [Concomitant]
     Active Substance: EPINEPHRINE

REACTIONS (2)
  - Urinary tract infection [Unknown]
  - Pneumonia [Unknown]
